FAERS Safety Report 12599207 (Version 2)
Quarter: 2016Q3

REPORT INFORMATION
  Report Type: Spontaneous
  Country: US (occurrence: US)
  Receive Date: 20160727
  Receipt Date: 20160927
  Transmission Date: 20161109
  Serious: No
  Sender: FDA-Public Use
  Company Number: US-PFIZER INC-2016326419

PATIENT
  Age: 77 Year
  Sex: Male
  Weight: 69 kg

DRUGS (3)
  1. METHYLPREDNISOLONE. [Suspect]
     Active Substance: METHYLPREDNISOLONE
     Dosage: UNK
  2. METHYLPREDNISOLONE. [Suspect]
     Active Substance: METHYLPREDNISOLONE
     Indication: EAR DISORDER
     Dosage: 24 MG, DAILY; 4MG TABLET, 6 TABLETS BY MOUTH DAILY, ON DAY ONE, THIS WAS A TAPERED DOSE
     Route: 048
     Dates: start: 20160629, end: 20160629
  3. METHYLPREDNISOLONE. [Suspect]
     Active Substance: METHYLPREDNISOLONE
     Indication: SINUS DISORDER
     Dosage: 20 MG, DAILY; DAY TWO TAKE 5 TABLETS BY MOUTH
     Route: 048
     Dates: start: 20160630, end: 20160630

REACTIONS (2)
  - Fatigue [Not Recovered/Not Resolved]
  - Insomnia [Recovered/Resolved]

NARRATIVE: CASE EVENT DATE: 20160629
